FAERS Safety Report 18985256 (Version 3)
Quarter: 2021Q2

REPORT INFORMATION
  Report Type: Spontaneous
  Country: TW (occurrence: TW)
  Receive Date: 20210309
  Receipt Date: 20210419
  Transmission Date: 20210717
  Serious: Yes (Other)
  Sender: FDA-Public Use
  Company Number: TW-AMGEN-TWNSP2021035761

PATIENT
  Age: 71 Year
  Sex: Female

DRUGS (2)
  1. ENBREL [Suspect]
     Active Substance: ETANERCEPT
     Dosage: 25 MG, BIW
     Route: 058
     Dates: start: 20210226
  2. ENBREL [Suspect]
     Active Substance: ETANERCEPT
     Indication: RHEUMATOID ARTHRITIS
     Dosage: 25 MG, WEEKLY
     Route: 058
     Dates: start: 20040901

REACTIONS (2)
  - Off label use [Unknown]
  - Rheumatoid arthritis [Not Recovered/Not Resolved]
